FAERS Safety Report 5100230-X (Version None)
Quarter: 2006Q3

REPORT INFORMATION
  Report Type: 
  Country: None (occurrence: None)
  Receive Date: 20060731
  Receipt Date: 20060515
  Transmission Date: 20061208
  Serious: No
  Sender: FDA-Public Use
  Company Number: 2006PV013834

PATIENT
  Age: 52 Year
  Sex: Female
  Weight: 108.4097 kg

DRUGS (4)
  1. BYETTA [Suspect]
     Indication: DIABETES MELLITUS NON-INSULIN-DEPENDENT
     Dosage: SEE IMAGE
     Route: 058
     Dates: start: 20051101, end: 20051101
  2. BYETTA [Suspect]
     Indication: DIABETES MELLITUS NON-INSULIN-DEPENDENT
     Dosage: SEE IMAGE
     Route: 058
     Dates: start: 20051101
  3. AMARYL [Concomitant]
  4. GLUCOPHAGE [Concomitant]

REACTIONS (6)
  - INJECTION SITE HYPERSENSITIVITY [None]
  - INJECTION SITE URTICARIA [None]
  - NAUSEA [None]
  - RETCHING [None]
  - VOMITING [None]
  - WEIGHT DECREASED [None]
